FAERS Safety Report 5694586-7 (Version None)
Quarter: 2008Q2

REPORT INFORMATION
  Report Type: 
  Country: None (occurrence: None)
  Receive Date: 20080404
  Receipt Date: 20080326
  Transmission Date: 20081010
  Serious: Yes (Death)
  Sender: FDA-Public Use
  Company Number: US-ROCHE-547878

PATIENT
  Sex: Female

DRUGS (3)
  1. ACCUTANE [Suspect]
     Indication: DRUG USE FOR UNKNOWN INDICATION
     Dosage: THE PATIENT WAS DISPENSED 40 MG ACCUTANE CAPSULES ON 22 OCTOBER 2007
     Route: 065
  2. SOTRET [Suspect]
     Indication: DRUG USE FOR UNKNOWN INDICATION
     Dosage: THE PATIENT WAS DISPENSED 40 MG SOTRET CAPSULES ON 21 AUGUST 2007 AND 21 SEPTEMBER 2007
     Route: 065
  3. CLARAVIS [Suspect]
     Indication: DRUG USE FOR UNKNOWN INDICATION
     Dosage: THE PATIENT WAS DISPENSED 40 MG CLARAVIS CAPSULES ON 26 NOVEMBER 2007, 20 DECEMBER 2007 AND 25 JANU+
     Route: 065

REACTIONS (1)
  - ROAD TRAFFIC ACCIDENT [None]
